FAERS Safety Report 10616578 (Version 1)
Quarter: 2014Q4

REPORT INFORMATION
  Report Type: Spontaneous
  Country: US (occurrence: US)
  Receive Date: 20141201
  Receipt Date: 20141201
  Transmission Date: 20150529
  Serious: Yes (Other)
  Sender: FDA-Public Use
  Company Number: US-BAYER-2014-174771

PATIENT
  Age: 17 Year
  Sex: Female
  Weight: 104.31 kg

DRUGS (5)
  1. BACTRIM DS [Concomitant]
     Active Substance: SULFAMETHOXAZOLE\TRIMETHOPRIM
     Dosage: 80 MG, PRN
     Route: 048
     Dates: start: 20030507
  2. YAZ [Suspect]
     Active Substance: DROSPIRENONE\ETHINYL ESTRADIOL
  3. IBUPROFEN. [Concomitant]
     Active Substance: IBUPROFEN
     Indication: MUSCULOSKELETAL DISCOMFORT
     Dosage: 200 - 800 MG
  4. TAZORAC [Concomitant]
     Active Substance: TAZAROTENE
     Indication: ACNE
     Dosage: UNK UNK, BID
  5. IBUPROFEN. [Concomitant]
     Active Substance: IBUPROFEN
     Indication: CHEST DISCOMFORT

REACTIONS (6)
  - Vena cava thrombosis [None]
  - Deep vein thrombosis [Recovered/Resolved]
  - Pulmonary embolism [None]
  - Thrombophlebitis superficial [None]
  - Jugular vein thrombosis [None]
  - Pelvic venous thrombosis [None]

NARRATIVE: CASE EVENT DATE: 20030530
